FAERS Safety Report 22113375 (Version 1)
Quarter: 2023Q1

REPORT INFORMATION
  Report Type: Spontaneous
  Country: FR (occurrence: None)
  Receive Date: 20230320
  Receipt Date: 20230320
  Transmission Date: 20230418
  Serious: Yes (Hospitalization)
  Sender: FDA-Public Use
  Company Number: FR-ROCHE-3312408

PATIENT
  Age: 4 Year
  Sex: Female
  Weight: 9 kg

DRUGS (2)
  1. RIVOTRIL [Suspect]
     Active Substance: CLONAZEPAM
     Indication: Wrong product administered
     Dosage: 1 MG/1 ML, DILUTABLE SOLUTIONS FOR INJECTION IN AMPOULES/INTRAVENOUS DRIP
     Route: 042
     Dates: start: 20230203, end: 20230203
  2. FLUMAZENIL [Concomitant]
     Active Substance: FLUMAZENIL

REACTIONS (2)
  - Somnolence [Recovered/Resolved]
  - Wrong patient received product [Unknown]

NARRATIVE: CASE EVENT DATE: 20230203
